FAERS Safety Report 7419467-X (Version None)
Quarter: 2011Q2

REPORT INFORMATION
  Report Type: 
  Country: None (occurrence: None)
  Receive Date: 20110413
  Receipt Date: 20110413
  Transmission Date: 20111010
  Serious: Yes (Hospitalization)
  Sender: FDA-Public Use
  Company Number: None

PATIENT
  Age: 72 Year
  Sex: Male
  Weight: 88.2 kg

DRUGS (1)
  1. ROSUVASTATIN CALCIUM [Suspect]
     Indication: LIPIDS INCREASED
     Dosage: 40 MG HS PO
     Route: 048
     Dates: start: 20100312, end: 20110322

REACTIONS (2)
  - RHABDOMYOLYSIS [None]
  - HEPATIC ENZYME INCREASED [None]
